FAERS Safety Report 12889177 (Version 2)
Quarter: 2016Q4

REPORT INFORMATION
  Report Type: Spontaneous
  Country: JP (occurrence: JP)
  Receive Date: 20161027
  Receipt Date: 20161124
  Transmission Date: 20170207
  Serious: Yes (Other)
  Sender: FDA-Public Use
  Company Number: JP-BRISTOL-MYERS SQUIBB COMPANY-BMS-2016-069922

PATIENT
  Age: 65 Year
  Sex: Female

DRUGS (7)
  1. OPDIVO [Suspect]
     Active Substance: NIVOLUMAB
     Indication: NON-SMALL CELL LUNG CANCER RECURRENT
     Dosage: 2.8 MG/KG, UNK
     Route: 041
     Dates: start: 20160616, end: 20160616
  2. OPDIVO [Suspect]
     Active Substance: NIVOLUMAB
     Indication: PRODUCT USED FOR UNKNOWN INDICATION
     Dosage: 2.8 MG/KG, UNK
     Route: 041
     Dates: start: 20160630, end: 20160630
  3. DOCETAXEL. [Suspect]
     Active Substance: DOCETAXEL
     Indication: PRODUCT USED FOR UNKNOWN INDICATION
     Dosage: 80 MG, UNK
     Route: 065
  4. OPDIVO [Suspect]
     Active Substance: NIVOLUMAB
     Indication: PRODUCT USED FOR UNKNOWN INDICATION
     Dosage: 2.8 MG/KG, UNK
     Route: 041
     Dates: start: 20160810, end: 20160810
  5. OPDIVO [Suspect]
     Active Substance: NIVOLUMAB
     Indication: PRODUCT USED FOR UNKNOWN INDICATION
     Dosage: 2.8 MG/KG, UNK
     Route: 041
     Dates: start: 20160714, end: 20160714
  6. OPDIVO [Suspect]
     Active Substance: NIVOLUMAB
     Indication: PRODUCT USED FOR UNKNOWN INDICATION
     Dosage: 2.8 MG/KG, UNK
     Route: 041
     Dates: start: 20160728, end: 20160728
  7. BEVACIZUMAB [Suspect]
     Active Substance: BEVACIZUMAB
     Indication: PRODUCT USED FOR UNKNOWN INDICATION
     Dosage: 700 MG, UNK
     Route: 065

REACTIONS (5)
  - Abdominal pain [Recovered/Resolved]
  - Computerised tomogram thorax abnormal [Recovered/Resolved]
  - Bone marrow failure [Recovered/Resolved]
  - Prescribed underdose [Unknown]
  - Malignant neoplasm progression [Unknown]

NARRATIVE: CASE EVENT DATE: 20160616
